FAERS Safety Report 6633293-0 (Version None)
Quarter: 2010Q1

REPORT INFORMATION
  Report Type: 
  Country: None (occurrence: None)
  Receive Date: 20100312
  Receipt Date: 20091221
  Transmission Date: 20100710
  Serious: No
  Sender: FDA-Public Use
  Company Number: US-ABBOTT-09P-163-0616601-00

PATIENT
  Sex: Female
  Weight: 78.088 kg

DRUGS (2)
  1. E.E.S. [Suspect]
     Indication: TOOTH INFECTION
     Route: 048
     Dates: start: 20090801, end: 20090801
  2. E.E.S. [Suspect]
     Indication: SINUSITIS

REACTIONS (1)
  - DIARRHOEA [None]
